FAERS Safety Report 13939592 (Version 1)
Quarter: 2017Q3

REPORT INFORMATION
  Report Type: Spontaneous
  Country: US (occurrence: None)
  Receive Date: 20170906
  Receipt Date: 20170906
  Transmission Date: 20171127
  Serious: Yes (Other)
  Sender: FDA-Public Use
  Company Number: None

PATIENT
  Age: 70 Year
  Sex: Male
  Weight: 81.65 kg

DRUGS (1)
  1. TERAZOSIN HCL 5MG CAP SAND [Suspect]
     Active Substance: TERAZOSIN HYDROCHLORIDE
     Indication: BLOOD PRESSURE MEASUREMENT
     Route: 048
     Dates: start: 20170616, end: 20170704

REACTIONS (2)
  - Haemorrhoidal haemorrhage [None]
  - Dyspnoea [None]

NARRATIVE: CASE EVENT DATE: 20170704
